FAERS Safety Report 9520625 (Version 2)
Quarter: 2013Q4

REPORT INFORMATION
  Report Type: Spontaneous
  Country: US (occurrence: US)
  Receive Date: 20130913
  Receipt Date: 20131107
  Transmission Date: 20140711
  Serious: Yes (Hospitalization, Other)
  Sender: FDA-Public Use
  Company Number: US-AMGEN-USASP2013063376

PATIENT
  Age: 80 Year
  Sex: Female
  Weight: 64 kg

DRUGS (24)
  1. SENSIPAR [Suspect]
     Indication: HYPERPARATHYROIDISM SECONDARY
     Dosage: 30 MG, QD
     Route: 048
     Dates: start: 20130508, end: 20130820
  2. ALLOPURINOL [Concomitant]
     Dosage: 100 MG, QD
     Route: 048
     Dates: start: 20130508
  3. ATIVAN [Concomitant]
     Dosage: 0.5 MG, QD
     Route: 048
     Dates: start: 20130808
  4. DIGOXIN [Concomitant]
     Dosage: 125 MUG, QOD
     Route: 048
     Dates: start: 20130508
  5. FOSRENOL [Concomitant]
     Dosage: UNK
     Dates: start: 20130508
  6. INSULIN [Concomitant]
     Dosage: UNK U/L, UNK
     Dates: start: 20130508
  7. ISOSORBIDE MONONITRATE [Concomitant]
     Dosage: 10 MG, UNK
     Dates: start: 20130508
  8. LANTUS [Concomitant]
     Dosage: 20 UNIT, BID
     Dates: start: 20130912
  9. MAG-OX [Concomitant]
     Dosage: 400 MG, BID
     Route: 048
     Dates: start: 20130608
  10. MONOKET [Concomitant]
     Dosage: UNK UNK, BID
     Route: 048
     Dates: start: 20130508
  11. SYMBICORT [Concomitant]
     Dosage: UNK UNK, BID
     Route: 055
     Dates: start: 20130508
  12. HYDROCODONE/ACETAMINOPHEN          /00607101/ [Concomitant]
     Dosage: 500 MG, AS NECESSARY
     Route: 048
     Dates: start: 20130508
  13. PHOSLYRA [Concomitant]
     Dosage: 15 ML, TID
     Route: 048
     Dates: start: 20130822
  14. RENVELA [Concomitant]
     Dosage: 800 MG, UNK
     Route: 048
     Dates: start: 20130508
  15. SYNTHROID [Concomitant]
     Dosage: 75 MUG, QD
     Route: 048
     Dates: start: 20130508
  16. DEMADEX                            /01036501/ [Concomitant]
     Dosage: 100 MG, BID
     Dates: start: 20130508
  17. ZAROXOLYN [Concomitant]
     Dosage: 5 MG, BID
     Route: 048
     Dates: start: 20130508
  18. ZEBETA [Concomitant]
     Dosage: 5 MG, QD
     Route: 048
     Dates: start: 20130808
  19. ZETIA [Concomitant]
     Dosage: 10 MG, QD
     Route: 048
     Dates: start: 20130808
  20. PROTONIX [Concomitant]
     Dosage: 40 MG, QD
     Route: 048
     Dates: start: 20130710
  21. DRISDOL [Concomitant]
     Dosage: 50000 UNIT, QWK
     Dates: start: 20130508
  22. NEURONTIN [Concomitant]
     Dosage: 100 MG, TID
     Route: 048
     Dates: start: 20130508
  23. CLINDAGEL [Concomitant]
     Dosage: UNK UNK, BID
     Route: 061
     Dates: start: 20130605, end: 20130804
  24. COLACE [Concomitant]
     Dosage: 100 MG, QD
     Route: 048

REACTIONS (5)
  - Blood glucose decreased [Unknown]
  - Chronic obstructive pulmonary disease [Unknown]
  - Convulsion [Recovered/Resolved]
  - Hypotension [Unknown]
  - Blood calcium decreased [Unknown]
